FAERS Safety Report 18447785 (Version 1)
Quarter: 2020Q4

REPORT INFORMATION
  Report Type: Spontaneous
  Country: ES (occurrence: ES)
  Receive Date: 20201031
  Receipt Date: 20201031
  Transmission Date: 20210114
  Serious: Yes (Hospitalization, Other)
  Sender: FDA-Public Use
  Company Number: ES-MICRO LABS LIMITED-ML2020-03173

PATIENT
  Age: 57 Year
  Sex: Female

DRUGS (11)
  1. LACOSAMIDE. [Suspect]
     Active Substance: LACOSAMIDE
     Indication: TONIC CLONIC MOVEMENTS
  2. LEVETIRACETAM. [Suspect]
     Active Substance: LEVETIRACETAM
     Route: 042
  3. VALPROATE [Suspect]
     Active Substance: VALPROIC ACID
     Route: 042
  4. PREDNISONE. [Concomitant]
     Active Substance: PREDNISONE
  5. LEVETIRACETAM. [Suspect]
     Active Substance: LEVETIRACETAM
     Indication: TONIC CLONIC MOVEMENTS
     Dosage: 500 MG EVERY 12 HOURS
  6. PROPOFOL. [Concomitant]
     Active Substance: PROPOFOL
  7. PERAMPANEL [Suspect]
     Active Substance: PERAMPANEL
     Indication: TONIC CLONIC MOVEMENTS
  8. OLANZAPINE. [Concomitant]
     Active Substance: OLANZAPINE
  9. MIDAZOLAM. [Suspect]
     Active Substance: MIDAZOLAM
     Indication: TONIC CLONIC MOVEMENTS
  10. VALPROATE [Suspect]
     Active Substance: VALPROIC ACID
     Indication: TONIC CLONIC MOVEMENTS
     Dosage: 500 MG EVERY 12 HOURS
  11. LORAZEPAM. [Concomitant]
     Active Substance: LORAZEPAM

REACTIONS (2)
  - Status epilepticus [Recovering/Resolving]
  - Hyperammonaemic encephalopathy [Recovering/Resolving]
